FAERS Safety Report 12492824 (Version 1)
Quarter: 2016Q2

REPORT INFORMATION
  Report Type: Spontaneous
  Country: US (occurrence: US)
  Receive Date: 20160623
  Receipt Date: 20160623
  Transmission Date: 20160815
  Serious: No
  Sender: FDA-Public Use
  Company Number: US-PFIZER INC-2016289088

PATIENT
  Age: 64 Year
  Sex: Female
  Weight: 90.72 kg

DRUGS (7)
  1. LYRICA [Suspect]
     Active Substance: PREGABALIN
     Indication: PAIN IN EXTREMITY
     Dosage: 150 MG, 2X/DAY
     Dates: start: 201509
  2. HYDROCO/APAP [Concomitant]
     Active Substance: ACETAMINOPHEN\HYDROCODONE
     Indication: RHEUMATOID ARTHRITIS
     Dosage: 10/325 MG, AS NEEDED (1-2 TABLETS UP TO 4X/DAY)
     Route: 048
  3. BIOTIN [Concomitant]
     Active Substance: BIOTIN
     Indication: SUPPLEMENTATION THERAPY
     Dosage: 1000 UG, DAILY
     Route: 048
  4. GARLIC. [Concomitant]
     Active Substance: GARLIC
     Indication: CARDIOVASCULAR EVENT PROPHYLAXIS
     Dosage: 500 MG, DAILY
     Route: 048
     Dates: start: 2016
  5. POTASSIUM [Concomitant]
     Active Substance: POTASSIUM
     Indication: MUSCLE DISORDER
     Dosage: 99 MG, DAILY
     Route: 048
  6. FISH OIL [Concomitant]
     Active Substance: FISH OIL
     Indication: SUPPLEMENTATION THERAPY
     Dosage: 1 DF, DAILY, 1200MG WITH 360MG OF OMEGA 3 FATTY ACIDS ONE GEL CAPSULE
     Route: 048
  7. CRANBERRY FRUIT PLUS VITAMIN C [Concomitant]
     Indication: SUPPLEMENTATION THERAPY
     Dosage: 2 DF, DAILY
     Route: 048

REACTIONS (1)
  - Bronchitis [Recovering/Resolving]

NARRATIVE: CASE EVENT DATE: 20160601
